FAERS Safety Report 7702164-0 (Version None)
Quarter: 2011Q3

REPORT INFORMATION
  Report Type: 
  Country: None (occurrence: None)
  Receive Date: 20110822
  Receipt Date: 20110812
  Transmission Date: 20111222
  Serious: Yes (Hospitalization)
  Sender: FDA-Public Use
  Company Number: US-ASTRAZENECA-2009UW07347

PATIENT
  Age: 83 Year
  Sex: Female
  Weight: 66.2 kg

DRUGS (6)
  1. RHINOCORT [Suspect]
     Indication: ASTHMA
     Route: 045
  2. LEVOTHYROXINE SODIUM [Concomitant]
     Indication: HYPOTHYROIDISM
  3. MARPLAN [Concomitant]
     Indication: DEPRESSION
  4. CRESTOR [Suspect]
     Indication: BLOOD CHOLESTEROL INCREASED
     Route: 048
     Dates: start: 20090301
  5. FLOVENT [Concomitant]
     Indication: ASTHMA
  6. SINGULAIR [Concomitant]
     Indication: ASTHMA

REACTIONS (6)
  - PAIN IN EXTREMITY [None]
  - MUSCLE SPASMS [None]
  - DYSPNOEA [None]
  - ABDOMINAL PAIN [None]
  - DIARRHOEA [None]
  - ABDOMINAL DISCOMFORT [None]
